FAERS Safety Report 24347327 (Version 1)
Quarter: 2024Q3

REPORT INFORMATION
  Report Type: Spontaneous
  Country: US (occurrence: US)
  Receive Date: 20240921
  Receipt Date: 20240921
  Transmission Date: 20241016
  Serious: No
  Sender: MERCK
  Company Number: US-009507513-2409USA004281

PATIENT
  Age: 79 Year
  Sex: Male

DRUGS (12)
  1. NOXAFIL [Suspect]
     Active Substance: POSACONAZOLE
     Indication: Scleritis
     Route: 048
  2. NOXAFIL [Suspect]
     Active Substance: POSACONAZOLE
     Indication: Fusarium infection
  3. NATAMYCIN [Concomitant]
     Active Substance: NATAMYCIN
     Indication: Scleritis
     Dosage: HOURLY
     Route: 061
  4. NATAMYCIN [Concomitant]
     Active Substance: NATAMYCIN
     Indication: Fusarium infection
  5. AMPHOTERICIN B [Concomitant]
     Active Substance: AMPHOTERICIN B
     Indication: Scleritis
     Dosage: SUB-TENON ROUTE
  6. AMPHOTERICIN B [Concomitant]
     Active Substance: AMPHOTERICIN B
     Indication: Fusarium infection
  7. VORICONAZOLE [Concomitant]
     Active Substance: VORICONAZOLE
     Indication: Scleritis
     Dosage: INTRASCLERAL ROUTE
  8. VORICONAZOLE [Concomitant]
     Active Substance: VORICONAZOLE
     Indication: Fusarium infection
     Dosage: UNK
     Route: 042
  9. ROSE BENGAL [Concomitant]
     Indication: Scleritis
     Dosage: 0.1% RB IN BALANCED SALT SOLUTION FRO 30 MINUTIES
  10. ROSE BENGAL [Concomitant]
     Indication: Fusarium infection
  11. VORICONAZOLE [Concomitant]
     Active Substance: VORICONAZOLE
     Indication: Scleritis
     Route: 048
  12. VORICONAZOLE [Concomitant]
     Active Substance: VORICONAZOLE
     Indication: Fusarium infection

REACTIONS (1)
  - Product use in unapproved indication [Unknown]
